FAERS Safety Report 5115214-5 (Version None)
Quarter: 2006Q3

REPORT INFORMATION
  Report Type: 
  Country: None (occurrence: None)
  Receive Date: 20060926
  Receipt Date: 20060918
  Transmission Date: 20061208
  Serious: Yes (Other)
  Sender: FDA-Public Use
  Company Number: US-AVENTIS-200617837US

PATIENT
  Sex: Male

DRUGS (25)
  1. LANTUS [Suspect]
     Indication: DIABETES MELLITUS NON-INSULIN-DEPENDENT
     Route: 058
     Dates: start: 20060701
  2. LANTUS [Suspect]
     Route: 058
     Dates: end: 20060915
  3. GLUCOPHAGE [Concomitant]
     Dosage: DOSE: UNKNOWN
  4. HUMULIN 70/30 [Concomitant]
     Dosage: DOSE: UNKNOWN
  5. AVODART                                 /USA/ [Concomitant]
     Dosage: DOSE: UNKNOWN
  6. POTASSIUM [Concomitant]
     Dosage: DOSE: UNKNOWN
  7. IMODIUM [Concomitant]
     Dosage: DOSE: UNKNOWN
  8. REGLAN [Concomitant]
     Dosage: DOSE: UNKNOWN
  9. DURAGESIC-100 [Concomitant]
     Dosage: DOSE: UNKNOWN
  10. NITROGLYCERIN [Concomitant]
     Dosage: DOSE: UNKNOWN
  11. DEPO-TESTOSTERONE [Concomitant]
     Dosage: DOSE: UNKNOWN
  12. FLOMAX [Concomitant]
     Dosage: DOSE: UNKNOWN
  13. XANAX [Concomitant]
     Dosage: DOSE: UNKNOWN
  14. LASIX [Concomitant]
     Dosage: DOSE: UNKNOWN
  15. TRICOR [Concomitant]
     Dosage: DOSE: UNKNOWN
  16. REMERON [Concomitant]
     Dosage: DOSE: UNKNOWN
  17. AMBIEN [Concomitant]
     Dosage: DOSE: UNKNOWN
  18. ASPIRIN [Concomitant]
     Dosage: DOSE: UNKNOWN
  19. PLAVIX [Concomitant]
     Dosage: DOSE: UNKNOWN
  20. ATENOLOL [Concomitant]
     Dosage: DOSE: UNKNOWN
  21. PREVACID [Concomitant]
     Dosage: DOSE: UNKNOWN
  22. COMBIVENT [Concomitant]
     Dosage: DOSE: UNKNOWN
  23. ADVAIR DISKUS 100/50 [Concomitant]
     Dosage: DOSE: UNKNOWN
  24. PERCOCET [Concomitant]
     Dosage: DOSE: UNKNOWN
  25. SINGULAIR [Concomitant]
     Dosage: DOSE: UNKNOWN

REACTIONS (8)
  - AGGRESSION [None]
  - AMNESIA [None]
  - BLOOD GLUCOSE INCREASED [None]
  - CONVULSION [None]
  - FALL [None]
  - LOSS OF CONSCIOUSNESS [None]
  - PHYSICAL ASSAULT [None]
  - TONGUE BITING [None]
